FAERS Safety Report 14355210 (Version 1)
Quarter: 2018Q1

REPORT INFORMATION
  Report Type: Spontaneous
  Country: US (occurrence: US)
  Receive Date: 20180104
  Receipt Date: 20180104
  Transmission Date: 20180509
  Serious: Yes (Life-Threatening, Hospitalization, Disabling)
  Sender: FDA-Public Use
  Company Number: None

PATIENT
  Age: 46 Year
  Sex: Female
  Weight: 83.7 kg

DRUGS (3)
  1. CLONAZEPAM. [Suspect]
     Active Substance: CLONAZEPAM
     Indication: SEIZURE
     Dosage: ?          QUANTITY:1 CAPSULE(S);?
     Route: 048
  2. PROZAC [Concomitant]
     Active Substance: FLUOXETINE HYDROCHLORIDE
  3. CLONIDINE. [Concomitant]
     Active Substance: CLONIDINE

REACTIONS (25)
  - Malaise [None]
  - Suicide attempt [None]
  - Intrusive thoughts [None]
  - Vitreous floaters [None]
  - Hypertension [None]
  - Panic attack [None]
  - Depression [None]
  - Myalgia [None]
  - Paranoia [None]
  - Therapy change [None]
  - Arthralgia [None]
  - Anxiety [None]
  - Seizure [None]
  - Anger [None]
  - Chest pain [None]
  - Insomnia [None]
  - Photopsia [None]
  - Impaired work ability [None]
  - Suicidal ideation [None]
  - Palpitations [None]
  - Paraesthesia [None]
  - Mental disorder [None]
  - Muscle spasms [None]
  - Agoraphobia [None]
  - Balance disorder [None]

NARRATIVE: CASE EVENT DATE: 20000101
